FAERS Safety Report 7770001-4 (Version None)
Quarter: 2011Q3

REPORT INFORMATION
  Report Type: 
  Country: None (occurrence: None)
  Receive Date: 20110922
  Receipt Date: 20110301
  Transmission Date: 20111222
  Serious: Yes (Other)
  Sender: FDA-Public Use
  Company Number: US-ASTRAZENECA-2009SE19108

PATIENT
  Age: 550 Month
  Sex: Male

DRUGS (13)
  1. SEROQUEL [Suspect]
     Dosage: 300 TO 600 MG
     Route: 048
     Dates: start: 20001124
  2. POTASSIUM CHLORIDE [Concomitant]
     Dates: start: 19980801
  3. CARTIA XT [Concomitant]
     Route: 048
     Dates: start: 20001202
  4. BUSPAR [Concomitant]
     Dosage: 30 TO 200 MG
     Route: 048
     Dates: start: 20001205
  5. LASIX [Concomitant]
     Dates: start: 19980609
  6. RISPERDAL [Concomitant]
     Dates: start: 19980801
  7. CARDURA [Concomitant]
     Dates: start: 19980801
  8. ASPIRIN [Concomitant]
     Route: 048
     Dates: start: 20001205
  9. PROZAC [Concomitant]
     Dates: start: 19980801
  10. ZOLOFT [Concomitant]
     Route: 048
     Dates: start: 20001124
  11. ISOSORBIDE MONONITRATE [Concomitant]
     Dates: start: 20001202
  12. CAPTOPRIL [Concomitant]
     Dates: start: 19980801
  13. THEO-DUR [Concomitant]
     Dosage: 300 TWO TIMES DAILY
     Dates: start: 19980801

REACTIONS (2)
  - DIABETES MELLITUS [None]
  - ERECTILE DYSFUNCTION [None]
